FAERS Safety Report 4526760-7 (Version None)
Quarter: 2004Q4

REPORT INFORMATION
  Report Type: 
  Country: None (occurrence: None)
  Receive Date: 20041213
  Receipt Date: 20041206
  Transmission Date: 20050328
  Serious: Yes (Life-Threatening)
  Sender: FDA-Public Use
  Company Number: 200415689BCC

PATIENT
  Age: 71 Year
  Sex: Female
  Weight: 72.5755 kg

DRUGS (4)
  1. ALEVE [Suspect]
     Indication: ARTHRITIS
     Dosage: 220 MG, ONCE,ORAL
     Route: 048
     Dates: start: 20041026, end: 20041116
  2. TENORMIN [Concomitant]
  3. AMARYL [Concomitant]
  4. PEPCID [Concomitant]

REACTIONS (1)
  - CHOKING [None]
